FAERS Safety Report 17479477 (Version 1)
Quarter: 2020Q1

REPORT INFORMATION
  Report Type: Spontaneous
  Country: US (occurrence: US)
  Receive Date: 20200228
  Receipt Date: 20200228
  Transmission Date: 20200409
  Serious: No
  Sender: FDA-Public Use
  Company Number: US-BAUSCH-BL-2020-005687

PATIENT
  Age: 75 Year
  Sex: Female

DRUGS (2)
  1. XIFAXAN [Suspect]
     Active Substance: RIFAXIMIN
     Indication: PRODUCT USE IN UNAPPROVED INDICATION
     Dosage: LOWERED HER DOSE TO 1 TABLET BY MOUTH DAILY
     Route: 048
  2. XIFAXAN [Suspect]
     Active Substance: RIFAXIMIN
     Indication: DIARRHOEA
     Dosage: START DATE: SEVERAL MONTHS AGO
     Route: 048
     Dates: start: 2019

REACTIONS (6)
  - Inability to afford medication [Unknown]
  - Product use in unapproved indication [Unknown]
  - Economic problem [Unknown]
  - Malaise [Unknown]
  - Diarrhoea [Not Recovered/Not Resolved]
  - Intentional product use issue [Unknown]
